FAERS Safety Report 6892333-4 (Version None)
Quarter: 2010Q3

REPORT INFORMATION
  Report Type: 
  Country: None (occurrence: None)
  Receive Date: 20100731
  Receipt Date: 20080421
  Transmission Date: 20110219
  Serious: No
  Sender: FDA-Public Use
  Company Number: US-PFIZER INC-2008035541

PATIENT
  Sex: Male
  Weight: 68.181 kg

DRUGS (12)
  1. CAVERJECT [Suspect]
     Indication: ERECTILE DYSFUNCTION
  2. SODIUM CHLORIDE [Suspect]
     Indication: MEDICATION DILUTION
  3. NEURONTIN [Concomitant]
  4. LANTUS [Concomitant]
  5. INSULIN LISPRO [Concomitant]
  6. LYRICA [Concomitant]
  7. HYDROCODONE BITARTRATE [Concomitant]
  8. OMEPRAZOLE [Concomitant]
  9. VIAGRA [Concomitant]
  10. NASONEX [Concomitant]
  11. LISINOPRIL [Concomitant]
  12. SIMVASTATIN [Concomitant]

REACTIONS (3)
  - DRUG INEFFECTIVE [None]
  - INJECTION SITE PAIN [None]
  - WRONG TECHNIQUE IN DRUG USAGE PROCESS [None]
